FAERS Safety Report 7933595-1 (Version None)
Quarter: 2011Q4

REPORT INFORMATION
  Report Type: 
  Country: None (occurrence: None)
  Receive Date: 20111122
  Receipt Date: 20111109
  Transmission Date: 20120403
  Serious: Yes (Hospitalization)
  Sender: FDA-Public Use
  Company Number: BE-NOVOPROD-320758

PATIENT
  Age: 48 Year
  Sex: Female
  Weight: 62 kg

DRUGS (13)
  1. NOVOSEVEN [Suspect]
     Indication: CONGENITAL THROMBOCYTE DISORDER
     Dosage: 6 MG/2 HOURS, QD
     Route: 042
     Dates: start: 20101214
  2. PLASMA-LYTE 56 AND DEXTROSE 5% IN PLASTIC CONTAINER [Concomitant]
  3. NOVOSEVEN [Suspect]
  4. PROPOFOL [Concomitant]
  5. SODIUM CHLORIDE [Concomitant]
  6. NOVOSEVEN [Suspect]
     Dosage: 6 MG/3HOURS, QD
     Route: 042
     Dates: start: 20101214
  7. NOVOSEVEN [Suspect]
     Dosage: 6 MG/6 HOURS, QD
     Dates: start: 20101221
  8. REMIFENTANIL [Concomitant]
  9. VENOFER [Concomitant]
  10. NOVOSEVEN [Suspect]
     Dosage: 6 MG/4 HOURS,QD
     Dates: start: 20101220
  11. NOVOSEVEN [Suspect]
     Dosage: 6 MG/8HOURS, QD
     Dates: start: 20101222
  12. NOVOSEVEN [Suspect]
     Dosage: 6 MG/24 HRS, QD
     Dates: start: 20101223, end: 20101223
  13. OMEPRAZOLE [Concomitant]
     Dosage: 3 G, QD
     Route: 048
     Dates: start: 20101213, end: 20101221

REACTIONS (2)
  - EPISTAXIS [None]
  - JUGULAR VEIN THROMBOSIS [None]
